FAERS Safety Report 10637892 (Version 2)
Quarter: 2014Q4

REPORT INFORMATION
  Report Type: Spontaneous
  Country: IT (occurrence: IT)
  Receive Date: 20141208
  Receipt Date: 20141209
  Transmission Date: 20150529
  Serious: Yes (Other)
  Sender: FDA-Public Use
  Company Number: IT-PFIZER INC-2014332249

PATIENT
  Age: 45 Year
  Sex: Female
  Weight: 55 kg

DRUGS (1)
  1. CHAMPIX [Suspect]
     Active Substance: VARENICLINE TARTRATE
     Dosage: UNK
     Dates: start: 20131128

REACTIONS (4)
  - Nausea [Unknown]
  - Breast tenderness [Unknown]
  - Retching [Unknown]
  - Exertional headache [Unknown]

NARRATIVE: CASE EVENT DATE: 20141028
